FAERS Safety Report 25825243 (Version 1)
Quarter: 2025Q3

REPORT INFORMATION
  Report Type: Spontaneous
  Country: EU (occurrence: EU)
  Receive Date: 20250919
  Receipt Date: 20250919
  Transmission Date: 20251020
  Serious: Yes (Hospitalization, Other)
  Sender: VERTEX
  Company Number: None

PATIENT
  Age: 0 Year
  Sex: Male

DRUGS (2)
  1. ELEXACAFTOR\IVACAFTOR\TEZACAFTOR [Suspect]
     Active Substance: ELEXACAFTOR\IVACAFTOR\TEZACAFTOR
     Indication: Cystic fibrosis
     Dosage: 75MG IVA / 50MG  TEZA/ 100MG ELEXA (2 TABS EVERY DAY)
     Route: 064
     Dates: start: 20250630, end: 20250805
  2. KALYDECO [Suspect]
     Active Substance: IVACAFTOR
     Indication: Cystic fibrosis
     Dosage: 1 TAB EVERY DAY
     Route: 064
     Dates: start: 20250630, end: 20250805

REACTIONS (2)
  - Neonatal respiratory distress syndrome [Recovering/Resolving]
  - Neonatal hypoxia [Recovering/Resolving]

NARRATIVE: CASE EVENT DATE: 20250805
